FAERS Safety Report 7892240-4 (Version None)
Quarter: 2011Q4

REPORT INFORMATION
  Report Type: 
  Country: None (occurrence: None)
  Receive Date: 20111104
  Receipt Date: 20111026
  Transmission Date: 20120403
  Serious: Yes (Other)
  Sender: FDA-Public Use
  Company Number: US-BIOGENIDEC-2011BI041366

PATIENT
  Age: 56 Year
  Sex: Male

DRUGS (2)
  1. TYSABRI [Suspect]
     Indication: MULTIPLE SCLEROSIS
     Route: 042
     Dates: start: 20070801
  2. LISINOPRIL [Concomitant]
     Indication: HYPERTENSION

REACTIONS (8)
  - VITREOUS HAEMORRHAGE [None]
  - MACULAR DEGENERATION [None]
  - DEPRESSED LEVEL OF CONSCIOUSNESS [None]
  - BLOOD GLUCOSE DECREASED [None]
  - HYPOTENSION [None]
  - RETINAL VASCULAR THROMBOSIS [None]
  - INCOHERENT [None]
  - BLOOD POTASSIUM DECREASED [None]
